FAERS Safety Report 4380109-1 (Version None)
Quarter: 2004Q2

REPORT INFORMATION
  Report Type: 
  Country: None (occurrence: None)
  Receive Date: 20040616
  Receipt Date: 20040602
  Transmission Date: 20050107
  Serious: Yes (Hospitalization, Other)
  Sender: FDA-Public Use
  Company Number: 2004S1001611

PATIENT
  Age: 51 Year
  Sex: Male

DRUGS (11)
  1. METOPROLOL TARTRATE [Suspect]
     Indication: HYPERTENSION
     Dosage: 100MG BID, ORAL
     Route: 048
     Dates: start: 20030213, end: 20030305
  2. INTERMEDIATE/LONG ACTING INSULIN [Concomitant]
  3. METFORMIN HCL [Concomitant]
  4. GLYBURIDE [Concomitant]
  5. LAMOTRIGINE [Concomitant]
  6. SIMVASTATIN [Concomitant]
  7. LISINOPRIL [Concomitant]
  8. FLUOXETINE [Concomitant]
  9. DILTIAZEM [Concomitant]
  10. ASPIRIN [Concomitant]
  11. HYDROCHLOROTHIAZIDE [Concomitant]

REACTIONS (4)
  - ABDOMINAL DISCOMFORT [None]
  - DYSPNOEA [None]
  - DYSPNOEA EXERTIONAL [None]
  - NON-CARDIAC CHEST PAIN [None]
